FAERS Safety Report 11682588 (Version 5)
Quarter: 2016Q1

REPORT INFORMATION
  Report Type: Report from Study
  Country: ID (occurrence: ID)
  Receive Date: 20151029
  Receipt Date: 20160219
  Transmission Date: 20160525
  Serious: Yes (Death, Hospitalization, Other)
  Sender: FDA-Public Use
  Company Number: ID-TAKEDA-2015MPI007009

PATIENT
  Age: 51 Year
  Sex: Male

DRUGS (1)
  1. VELCADE [Suspect]
     Active Substance: BORTEZOMIB
     Indication: PRODUCT USED FOR UNKNOWN INDICATION
     Dosage: UNK
     Route: 042
     Dates: start: 20151013, end: 20151103

REACTIONS (11)
  - Blood creatinine abnormal [Not Recovered/Not Resolved]
  - Abdominal distension [Recovered/Resolved]
  - Abdominal pain [Recovering/Resolving]
  - Nausea [Not Recovered/Not Resolved]
  - Chills [Recovered/Resolved]
  - Haemoglobin decreased [Unknown]
  - Plasma cell myeloma [Fatal]
  - Pyrexia [Recovered/Resolved]
  - Platelet count abnormal [Unknown]
  - Blood urea abnormal [Unknown]
  - Peripheral swelling [Recovered/Resolved]

NARRATIVE: CASE EVENT DATE: 20151014
